FAERS Safety Report 10018720 (Version 1)
Quarter: 2014Q1

REPORT INFORMATION
  Report Type: Spontaneous
  Country: US (occurrence: None)
  Receive Date: 20140314
  Receipt Date: 20140314
  Transmission Date: 20141002
  Serious: No
  Sender: FDA-Public Use
  Company Number: None

PATIENT
  Age: 34 Year
  Sex: Female
  Weight: 65.77 kg

DRUGS (2)
  1. CONTROL CREAM MARIO BADESCU CFSAN [Suspect]
     Indication: THERAPEUTIC SKIN CARE TOPICAL
     Dates: start: 20121001, end: 20130331
  2. CORTICOSTEROID [Suspect]

REACTIONS (5)
  - Product quality issue [None]
  - Rash [None]
  - Rosacea [None]
  - Product label issue [None]
  - Product formulation issue [None]
